FAERS Safety Report 9466681 (Version 1)
Quarter: 2013Q3

REPORT INFORMATION
  Report Type: Spontaneous
  Country: US (occurrence: US)
  Receive Date: 20130820
  Receipt Date: 20130820
  Transmission Date: 20140515
  Serious: Yes (Other)
  Sender: FDA-Public Use
  Company Number: US-AMGEN-USASP2013057176

PATIENT
  Age: 57 Year
  Sex: Male

DRUGS (2)
  1. XGEVA [Suspect]
     Indication: PROSTATE CANCER METASTATIC
     Route: 065
  2. XGEVA [Suspect]
     Indication: METASTASES TO BONE

REACTIONS (2)
  - Osteonecrosis of jaw [Unknown]
  - Blood calcium abnormal [Unknown]
